FAERS Safety Report 8483626-8 (Version None)
Quarter: 2012Q3

REPORT INFORMATION
  Report Type: 
  Country: None (occurrence: None)
  Receive Date: 20120702
  Receipt Date: 20120619
  Transmission Date: 20120928
  Serious: Yes (Hospitalization, Other)
  Sender: FDA-Public Use
  Company Number: US-ELI_LILLY_AND_COMPANY-US201206006459

PATIENT

DRUGS (5)
  1. FOLIC ACID [Concomitant]
     Indication: PREGNANCY
     Dosage: 800 MG, UNK
  2. BYETTA [Suspect]
     Dosage: 10 UG, BID
     Route: 064
  3. FISH OIL [Concomitant]
     Indication: PREGNANCY
     Dosage: 1000 MG, UNK
  4. NIASPAN [Concomitant]
     Indication: BLOOD CHOLESTEROL INCREASED
     Dosage: 500 MG, UNK
  5. PRENATAL VITAMINS                  /01549301/ [Concomitant]
     Indication: PREGNANCY
     Dosage: 1 DF, UNK

REACTIONS (4)
  - PYLORIC STENOSIS [None]
  - DYSPEPSIA [None]
  - FOETAL EXPOSURE DURING PREGNANCY [None]
  - EXPOSURE DURING BREAST FEEDING [None]
